FAERS Safety Report 21748754 (Version 1)
Quarter: 2022Q4

REPORT INFORMATION
  Report Type: Report from Study
  Country: EG (occurrence: EG)
  Receive Date: 20221219
  Receipt Date: 20221219
  Transmission Date: 20230113
  Serious: Yes (Hospitalization, Other)
  Sender: FDA-Public Use
  Company Number: EG-AMGEN-EGYSL2022215814

PATIENT
  Age: 26 Year
  Sex: Male

DRUGS (1)
  1. REPATHA [Suspect]
     Active Substance: EVOLOCUMAB
     Indication: Low density lipoprotein increased
     Dosage: UNK, Q2WK
     Route: 065
     Dates: start: 20220926

REACTIONS (3)
  - Renal failure [Unknown]
  - Anaemia [Unknown]
  - Illness [Unknown]

NARRATIVE: CASE EVENT DATE: 20220101
